FAERS Safety Report 9556974 (Version 2)
Quarter: 2013Q3

REPORT INFORMATION
  Report Type: Spontaneous
  Country: US (occurrence: US)
  Receive Date: 20130926
  Receipt Date: 20130926
  Transmission Date: 20140515
  Serious: Yes (Other)
  Sender: FDA-Public Use
  Company Number: PHEH2013US017978

PATIENT
  Sex: Male

DRUGS (9)
  1. TEGRETOL [Suspect]
     Dosage: UNK UKN, UNK
     Dates: start: 1972
  2. TEGRETOL [Suspect]
     Dosage: 800 MG, UNK
     Dates: start: 199102
  3. TEGRETOL [Suspect]
     Dosage: 600 MG, UNK
  4. TEGRETOL [Suspect]
     Dosage: 200 MG, UNK
     Dates: start: 20130806
  5. TEGRETOL [Suspect]
     Dosage: 100 MG, UNK
  6. VIMPAT [Suspect]
     Dosage: 100 MG, UNK
  7. PHENOBARBITAL [Concomitant]
     Dosage: UNK UKN, UNK
  8. DILANTIN                                /AUS/ [Concomitant]
     Dosage: UNK UKN, UNK
  9. MULTI-VIT [Concomitant]
     Dosage: UNK UKN, UNK

REACTIONS (8)
  - Heart rate increased [Unknown]
  - Grand mal convulsion [Unknown]
  - Epistaxis [Unknown]
  - Oropharyngeal pain [Recovered/Resolved]
  - Skin disorder [Unknown]
  - Insomnia [Unknown]
  - Somnolence [Unknown]
  - Constipation [Unknown]
